FAERS Safety Report 11734014 (Version 1)
Quarter: 2015Q4

REPORT INFORMATION
  Report Type: Spontaneous
  Country: US (occurrence: None)
  Receive Date: 20151112
  Receipt Date: 20151112
  Transmission Date: 20160304
  Serious: Yes (Hospitalization)
  Sender: FDA-Public Use
  Company Number: None

PATIENT
  Age: 27 Year
  Sex: Female
  Weight: 62.1 kg

DRUGS (4)
  1. BACTRIM [Suspect]
     Active Substance: SULFAMETHOXAZOLE\TRIMETHOPRIM
  2. BACTRIM [Concomitant]
     Active Substance: SULFAMETHOXAZOLE\TRIMETHOPRIM
  3. KEFLEX [Concomitant]
     Active Substance: CEPHALEXIN
  4. VANCOMYCIN [Concomitant]
     Active Substance: VANCOMYCIN

REACTIONS (6)
  - Toxic epidermal necrolysis [None]
  - Linear IgA disease [None]
  - Stevens-Johnson syndrome [None]
  - Erythema multiforme [None]
  - Pemphigoid [None]
  - Drug reaction with eosinophilia and systemic symptoms [None]

NARRATIVE: CASE EVENT DATE: 20151106
